FAERS Safety Report 11358451 (Version 1)
Quarter: 2015Q3

REPORT INFORMATION
  Report Type: Spontaneous
  Country: US (occurrence: US)
  Receive Date: 20150803
  Receipt Date: 20150803
  Transmission Date: 20151125
  Serious: No
  Sender: FDA-Public Use
  Company Number: US-ELI_LILLY_AND_COMPANY-US200706006102

PATIENT
  Age: 51 Year
  Sex: Female

DRUGS (11)
  1. PREDNISONE. [Concomitant]
     Active Substance: PREDNISONE
  2. WELLBUTRIN XL [Concomitant]
     Active Substance: BUPROPION HYDROCHLORIDE
     Dosage: 300 MG, UNK
  3. ZYPREXA [Suspect]
     Active Substance: OLANZAPINE
     Indication: DEPRESSION
     Dosage: 2.5 MG, DAILY (1/D)
     Route: 048
     Dates: start: 200211
  4. ADVAIR HFA [Concomitant]
     Active Substance: FLUTICASONE PROPIONATE\SALMETEROL XINAFOATE
  5. ALLEGRA D /01367401/ [Concomitant]
     Dosage: UNK, AS NEEDED
  6. STRATTERA [Suspect]
     Active Substance: ATOMOXETINE HYDROCHLORIDE
     Dosage: 18 MG, EACH EVENING
  7. ESTRACE [Concomitant]
     Active Substance: ESTRADIOL
     Dosage: 2 MG, UNK
  8. ASACOL [Concomitant]
     Active Substance: MESALAMINE
     Dosage: 2400 MG, UNK
  9. STRATTERA [Suspect]
     Active Substance: ATOMOXETINE HYDROCHLORIDE
     Indication: DEPRESSION
     Dosage: 18 MG, DAILY (1/D)
     Dates: start: 20070613
  10. RHINOCORT [Concomitant]
     Active Substance: BUDESONIDE
  11. SINGULAIR [Concomitant]
     Active Substance: MONTELUKAST SODIUM
     Dosage: 10 MG, UNK

REACTIONS (3)
  - Drug ineffective [Not Recovered/Not Resolved]
  - Crohn^s disease [Unknown]
  - Insomnia [Not Recovered/Not Resolved]

NARRATIVE: CASE EVENT DATE: 200707
